FAERS Safety Report 25813497 (Version 1)
Quarter: 2025Q3

REPORT INFORMATION
  Report Type: Spontaneous
  Country: EU (occurrence: EU)
  Receive Date: 20250917
  Receipt Date: 20250917
  Transmission Date: 20251020
  Serious: Yes (Hospitalization, Other)
  Sender: MSN LABORATORIES PRIVATE LIMITED
  Company Number: None

PATIENT

DRUGS (13)
  1. PREGABALIN [Suspect]
     Active Substance: PREGABALIN
     Indication: Anxiety
     Route: 065
  2. PREGABALIN [Suspect]
     Active Substance: PREGABALIN
     Indication: Therapy cessation
  3. PREGABALIN [Suspect]
     Active Substance: PREGABALIN
     Indication: Epilepsy
  4. PREGABALIN [Suspect]
     Active Substance: PREGABALIN
     Indication: Psychiatric symptom
  5. HALOPERIDOL [Suspect]
     Active Substance: HALOPERIDOL
     Indication: Therapy cessation
     Dosage: 5 MILLIGRAM
     Route: 065
  6. HALOPERIDOL [Suspect]
     Active Substance: HALOPERIDOL
     Indication: Psychotic symptom
  7. LAMOTRIGINE [Suspect]
     Active Substance: LAMOTRIGINE
     Indication: Therapy cessation
     Dosage: 400 MILLIGRAM
     Route: 065
  8. HYDROXYZINE [Suspect]
     Active Substance: HYDROXYZINE HYDROCHLORIDE
     Indication: Epilepsy
     Route: 065
  9. HYDROXYZINE [Suspect]
     Active Substance: HYDROXYZINE HYDROCHLORIDE
     Indication: Psychiatric symptom
  10. VALPROIC ACID [Suspect]
     Active Substance: VALPROIC ACID
     Indication: Epilepsy
     Dosage: 1000 MG OF SODIUM VALPROATE + VALPROIC ACID
     Route: 065
  11. VALPROIC ACID [Suspect]
     Active Substance: VALPROIC ACID
     Indication: Therapy cessation
  12. QUETIAPINE [Suspect]
     Active Substance: QUETIAPINE
     Indication: Therapy cessation
     Dosage: 800 MG/24 H
     Route: 065
  13. LAMOTRIGINE [Concomitant]
     Active Substance: LAMOTRIGINE
     Indication: Epilepsy
     Route: 065

REACTIONS (9)
  - Condition aggravated [Recovering/Resolving]
  - Multiple-drug resistance [Unknown]
  - Drug ineffective [Recovering/Resolving]
  - Psychotic symptom [Recovered/Resolved]
  - Apathy [Recovering/Resolving]
  - Anxiety [Unknown]
  - Depressed mood [Recovering/Resolving]
  - Overdose [Unknown]
  - Negative thoughts [Recovering/Resolving]
